FAERS Safety Report 6988156-8 (Version None)
Quarter: 2010Q3

REPORT INFORMATION
  Report Type: 
  Country: None (occurrence: None)
  Receive Date: 20100916
  Receipt Date: 20100908
  Transmission Date: 20110219
  Serious: Yes (Congenital Anomaly)
  Sender: FDA-Public Use
  Company Number: BR-ROCHE-684177

PATIENT
  Sex: Male

DRUGS (1)
  1. ROACUTAN [Suspect]
     Indication: ACNE
     Route: 064
     Dates: end: 20100128

REACTIONS (1)
  - EAR MALFORMATION [None]
